FAERS Safety Report 5478852-6 (Version None)
Quarter: 2007Q4

REPORT INFORMATION
  Report Type: 
  Country: None (occurrence: None)
  Receive Date: 20071002
  Receipt Date: 20070926
  Transmission Date: 20080405
  Serious: Yes (Other)
  Sender: FDA-Public Use
  Company Number: 200709AGG00715

PATIENT
  Age: 52 Year
  Sex: Male

DRUGS (2)
  1. TIROFIBAN HYDROCHLORIDE (TIROFIBAN HCL) [Suspect]
     Indication: ANGINA UNSTABLE
     Dosage: INTRAVENOUS
     Route: 042
     Dates: start: 20070816, end: 20070821
  2. ASPIRIN [Concomitant]

REACTIONS (1)
  - POST PROCEDURAL MYOCARDIAL INFARCTION [None]
